FAERS Safety Report 5137005-1 (Version None)
Quarter: 2006Q4

REPORT INFORMATION
  Report Type: 
  Country: None (occurrence: None)
  Receive Date: 20061030
  Receipt Date: 20061019
  Transmission Date: 20070319
  Serious: Yes (Hospitalization)
  Sender: FDA-Public Use
  Company Number: US-JNJFOC-20061004498

PATIENT
  Sex: Female

DRUGS (10)
  1. INFLIXIMAB [Suspect]
     Indication: RHEUMATOID ARTHRITIS
  2. FOLIC ACID [Concomitant]
  3. PREDNISONE TAB [Concomitant]
  4. ROXICET [Concomitant]
  5. TREXALL [Concomitant]
  6. ACTONEL [Concomitant]
  7. ZETIA [Concomitant]
  8. OSCAL [Concomitant]
  9. CELEBREX [Concomitant]
  10. SYNTHROID [Concomitant]

REACTIONS (1)
  - COLON CANCER METASTATIC [None]
